FAERS Safety Report 9507830 (Version 1)
Quarter: 2013Q3

REPORT INFORMATION
  Report Type: Spontaneous
  Country: PE (occurrence: PE)
  Receive Date: 20130909
  Receipt Date: 20130909
  Transmission Date: 20140515
  Serious: Yes (Death)
  Sender: FDA-Public Use
  Company Number: PE-PFIZER INC-2013254607

PATIENT
  Age: 83 Year
  Sex: Female

DRUGS (2)
  1. ECALTA [Suspect]
     Dosage: 100 MG, UNK
     Route: 042
  2. DIFLUCAN [Suspect]
     Route: 042

REACTIONS (1)
  - Death [Fatal]
